FAERS Safety Report 11430460 (Version 1)
Quarter: 2015Q3

REPORT INFORMATION
  Report Type: Spontaneous
  Country: US (occurrence: US)
  Receive Date: 20150828
  Receipt Date: 20150828
  Transmission Date: 20151125
  Serious: No
  Sender: FDA-Public Use
  Company Number: US-ROCHE-1259068

PATIENT
  Sex: Male

DRUGS (5)
  1. PEGASYS [Suspect]
     Active Substance: PEGINTERFERON ALFA-2A
     Indication: CHRONIC HEPATITIS C
     Route: 058
     Dates: start: 20130524
  2. OXYCODONE [Concomitant]
     Active Substance: OXYCODONE
     Dosage: 5-10 MG AS NEEDED
     Route: 065
  3. OXYCODONE [Concomitant]
     Active Substance: OXYCODONE
     Dosage: AS NEEDED
     Route: 065
  4. TELAPREVIR [Suspect]
     Active Substance: TELAPREVIR
     Indication: CHRONIC HEPATITIS C
     Route: 065
     Dates: start: 20130524
  5. RIBAVIRIN. [Suspect]
     Active Substance: RIBAVIRIN
     Indication: CHRONIC HEPATITIS C
     Dosage: 400/600
     Route: 048
     Dates: start: 20130524

REACTIONS (7)
  - Fatigue [Unknown]
  - Abdominal pain [Unknown]
  - Muscle spasms [Unknown]
  - Nausea [Unknown]
  - Pruritus [Recovering/Resolving]
  - Constipation [Unknown]
  - Injection site reaction [Recovering/Resolving]
